FAERS Safety Report 24841370 (Version 1)
Quarter: 2025Q1

REPORT INFORMATION
  Report Type: Spontaneous
  Country: US (occurrence: None)
  Receive Date: 20250114
  Receipt Date: 20250114
  Transmission Date: 20250409
  Serious: Yes (Hospitalization)
  Sender: FDA-CTU
  Company Number: None

PATIENT
  Age: 73 Year
  Sex: Male

DRUGS (3)
  1. DAPTOMYCIN IN SODIUM CHLORIDE [Suspect]
     Active Substance: DAPTOMYCIN
     Indication: Gangrene
  2. CEFEPIME [Suspect]
     Active Substance: CEFEPIME HYDROCHLORIDE
  3. METRONIDAZOLE [Suspect]
     Active Substance: METRONIDAZOLE

REACTIONS (6)
  - Hyponatraemia [None]
  - Hypotension [None]
  - White blood cell count increased [None]
  - Dizziness postural [None]
  - Fatigue [None]
  - Eosinophilic pneumonia [None]

NARRATIVE: CASE EVENT DATE: 20241028
